FAERS Safety Report 21944238 (Version 2)
Quarter: 2023Q1

REPORT INFORMATION
  Report Type: Spontaneous
  Country: IL (occurrence: IL)
  Receive Date: 20230202
  Receipt Date: 20230307
  Transmission Date: 20230417
  Serious: Yes (Hospitalization)
  Sender: FDA-Public Use
  Company Number: IL-TAKEDA-2023TUS009900

PATIENT
  Age: 26 Year
  Sex: Male

DRUGS (3)
  1. HYQVIA [Suspect]
     Active Substance: HUMAN IMMUNOGLOBULIN G\HYALURONIDASE RECOMBINANT HUMAN
     Indication: Beta 2 microglobulin decreased
     Dosage: 20 MILLIGRAM
     Route: 065
  2. HUMAN IMMUNOGLOBULIN G [Concomitant]
     Active Substance: HUMAN IMMUNOGLOBULIN G
     Indication: Petechiae
     Dosage: UNK
     Route: 042
  3. HUMAN IMMUNOGLOBULIN G [Concomitant]
     Active Substance: HUMAN IMMUNOGLOBULIN G
     Indication: Platelet count abnormal

REACTIONS (3)
  - Petechiae [Recovering/Resolving]
  - Platelet count abnormal [Recovered/Resolved]
  - Human rhinovirus test positive [Unknown]
